FAERS Safety Report 11807196 (Version 3)
Quarter: 2016Q1

REPORT INFORMATION
  Report Type: Report from Study
  Country: US (occurrence: US)
  Receive Date: 20151207
  Receipt Date: 20160113
  Transmission Date: 20160525
  Serious: Yes (Hospitalization, Other)
  Sender: FDA-Public Use
  Company Number: US-GILEAD-2015-0186114

PATIENT
  Age: 51 Year
  Sex: Female

DRUGS (2)
  1. VELETRI [Suspect]
     Active Substance: EPOPROSTENOL
     Indication: PRODUCT USED FOR UNKNOWN INDICATION
     Route: 065
  2. AMBRISENTAN [Suspect]
     Active Substance: AMBRISENTAN
     Indication: PRODUCT USED FOR UNKNOWN INDICATION
     Dosage: 10 MG, QD
     Route: 065
     Dates: start: 20151119

REACTIONS (8)
  - Vomiting [Unknown]
  - Dyspnoea [Unknown]
  - Mental status changes [Unknown]
  - Productive cough [Unknown]
  - Hypotension [Unknown]
  - Vital signs measurement [Unknown]
  - Cyanosis [Unknown]
  - Pulmonary hypertension [Unknown]
